FAERS Safety Report 4667247-0 (Version None)
Quarter: 2005Q2

REPORT INFORMATION
  Report Type: 
  Country: None (occurrence: None)
  Receive Date: 20050421
  Receipt Date: 20050218
  Transmission Date: 20051028
  Serious: Yes (Other)
  Sender: FDA-Public Use
  Company Number: 800282

PATIENT
  Age: 55 Year
  Sex: Male

DRUGS (18)
  1. EXTRANEAL [Suspect]
     Indication: PERITONEAL DIALYSIS
     Dosage: QD; INTRAPERITONEAL
     Route: 033
     Dates: start: 20050201, end: 20050211
  2. PIOGLITAZONE HCL [Concomitant]
  3. FULL SPECTRUM B [Concomitant]
  4. FOLIC ACID [Concomitant]
  5. VITAMIN E [Concomitant]
  6. OMEGA 3 FATTY ACIDS [Concomitant]
  7. FERROUS GLUCONATE [Concomitant]
  8. MEVACOR [Concomitant]
  9. ASPIRIN [Concomitant]
  10. CALCITRIOL [Concomitant]
  11. RENALGEL [Concomitant]
  12. ATENOLOL [Concomitant]
  13. EPOGEN [Concomitant]
  14. NPH INSULIN [Concomitant]
  15. REGULAR ILETIN II [Concomitant]
  16. MUPROCIN [Concomitant]
  17. TUMS [Concomitant]
  18. IMODIUM [Concomitant]

REACTIONS (3)
  - RASH ERYTHEMATOUS [None]
  - RASH PAPULAR [None]
  - RASH PRURITIC [None]
